FAERS Safety Report 15744820 (Version 1)
Quarter: 2018Q4

REPORT INFORMATION
  Report Type: Report from Study
  Country: US (occurrence: US)
  Receive Date: 20181220
  Receipt Date: 20181220
  Transmission Date: 20190205
  Serious: Yes (Hospitalization, Other)
  Sender: FDA-Public Use
  Company Number: US-EISAI MEDICAL RESEARCH-EC-2018-049442

PATIENT
  Age: 70 Year
  Sex: Female
  Weight: 58.6 kg

DRUGS (18)
  1. CALTRATE [Concomitant]
     Active Substance: CALCIUM CARBONATE
  2. LISINOPRIL. [Concomitant]
     Active Substance: LISINOPRIL
  3. ASPIRIN. [Concomitant]
     Active Substance: ASPIRIN
  4. RIZATRIPTAN. [Concomitant]
     Active Substance: RIZATRIPTAN
  5. LORAZEPAM. [Concomitant]
     Active Substance: LORAZEPAM
  6. ZOFRAN [Concomitant]
     Active Substance: ONDANSETRON HYDROCHLORIDE
  7. RANITIDINE. [Concomitant]
     Active Substance: RANITIDINE
  8. PRESERVISION AREDS [Concomitant]
     Active Substance: MINERALS\VITAMINS
  9. MIRALAX [Concomitant]
     Active Substance: POLYETHYLENE GLYCOL 3350
  10. FLONASE [Concomitant]
     Active Substance: FLUTICASONE PROPIONATE
  11. PEMBROLIZUMAB. [Suspect]
     Active Substance: PEMBROLIZUMAB
     Indication: TRIPLE NEGATIVE BREAST CANCER
     Route: 041
     Dates: start: 20180130
  12. LORATADINE. [Concomitant]
     Active Substance: LORATADINE
  13. METOPROLOL TARTRATE. [Concomitant]
     Active Substance: METOPROLOL TARTRATE
  14. ERIBULIN [Suspect]
     Active Substance: ERIBULIN
     Indication: TRIPLE NEGATIVE BREAST CANCER
     Route: 041
     Dates: start: 20180130, end: 201809
  15. ERIBULIN [Suspect]
     Active Substance: ERIBULIN
     Route: 041
     Dates: start: 20180917, end: 20181211
  16. CENTRUM MULTIVITAMIN [Concomitant]
  17. PRAVASTATIN. [Concomitant]
     Active Substance: PRAVASTATIN
  18. SENAKOT [Concomitant]

REACTIONS (4)
  - Anaemia [Recovering/Resolving]
  - Duodenal ulcer [Recovering/Resolving]
  - Duodenitis [Recovering/Resolving]
  - Gastric ulcer [Recovering/Resolving]

NARRATIVE: CASE EVENT DATE: 20181217
